FAERS Safety Report 9063635 (Version 1)
Quarter: 2013Q1

REPORT INFORMATION
  Report Type: Spontaneous
  Country: US (occurrence: US)
  Receive Date: 20130213
  Receipt Date: 20130213
  Transmission Date: 20140127
  Serious: Yes (Life-Threatening, Hospitalization, Other)
  Sender: FDA-Public Use
  Company Number: US-B.I. PHARMACEUTICALS,INC./RIDGEFIELD-2013-BI-03733GD

PATIENT
  Age: 94 Year
  Sex: Male

DRUGS (1)
  1. PRADAXA [Suspect]
     Indication: ATRIAL FIBRILLATION
     Dosage: 300 MG
     Route: 048

REACTIONS (10)
  - Subdural haematoma [Unknown]
  - Brain compression [Unknown]
  - Brain midline shift [Unknown]
  - Fall [Unknown]
  - Hemiparesis [Not Recovered/Not Resolved]
  - Neurologic neglect syndrome [Unknown]
  - Brain herniation [Unknown]
  - Confusional state [Unknown]
  - Coagulation test abnormal [Unknown]
  - Anticoagulation drug level [Unknown]
